FAERS Safety Report 8046712-2 (Version None)
Quarter: 2012Q1

REPORT INFORMATION
  Report Type: 
  Country: None (occurrence: None)
  Receive Date: 20120116
  Receipt Date: 20120104
  Transmission Date: 20120608
  Serious: Yes (Hospitalization)
  Sender: FDA-Public Use
  Company Number: BE-BIOGENIDEC-2011BI042604

PATIENT
  Age: 21 Year
  Sex: Female

DRUGS (4)
  1. TYSABRI [Suspect]
     Indication: RELAPSING-REMITTING MULTIPLE SCLEROSIS
     Route: 042
     Dates: start: 20100707
  2. VESICARE [Concomitant]
  3. GABAPENTIN [Concomitant]
  4. CETIRIZINE [Concomitant]

REACTIONS (1)
  - BLADDER DISORDER [None]
